FAERS Safety Report 4638308-7 (Version None)
Quarter: 2005Q2

REPORT INFORMATION
  Report Type: 
  Country: None (occurrence: None)
  Receive Date: 20050418
  Receipt Date: 20050411
  Transmission Date: 20051028
  Serious: Yes (Death, Other)
  Sender: FDA-Public Use
  Company Number: SG-MERCK-0504USA01873

PATIENT
  Age: 75 Year
  Sex: Female

DRUGS (4)
  1. DECADRON [Suspect]
     Indication: MULTIPLE MYELOMA
     Route: 048
  2. MELPHALAN [Concomitant]
     Indication: MULTIPLE MYELOMA
     Route: 065
  3. PREDNISOLONE [Concomitant]
     Indication: MULTIPLE MYELOMA
     Route: 065
  4. THALIDOMIDE [Suspect]
     Indication: MULTIPLE MYELOMA
     Route: 065

REACTIONS (5)
  - ADVERSE EVENT [None]
  - DEATH [None]
  - MALIGNANT PLEURAL EFFUSION [None]
  - MULTIPLE MYELOMA [None]
  - RENAL FAILURE [None]
